FAERS Safety Report 8099227-X (Version None)
Quarter: 2012Q1

REPORT INFORMATION
  Report Type: 
  Country: None (occurrence: None)
  Receive Date: 20120129
  Receipt Date: 20111004
  Transmission Date: 20120608
  Serious: No
  Sender: FDA-Public Use
  Company Number: US-ABBOTT-11P-163-0861275-00

PATIENT
  Sex: Female

DRUGS (7)
  1. HUMIRA [Suspect]
     Indication: PUSTULAR PSORIASIS
     Dosage: ABOUT EVERY FIVE TO SEVEN WEEKS
     Dates: start: 20091104
  2. PRILOSEC [Concomitant]
     Indication: DYSPEPSIA
  3. EXCEDRIN [Concomitant]
     Indication: MIGRAINE
  4. VITAMIN D [Concomitant]
     Indication: VITAMIN SUPPLEMENTATION
  5. TRI-SPRINTEC [Concomitant]
     Indication: ENDOMETRIOSIS
  6. HUMIRA [Suspect]
     Indication: PSORIATIC ARTHROPATHY
  7. ZYRTEC [Concomitant]
     Indication: HYPERSENSITIVITY

REACTIONS (8)
  - FATIGUE [None]
  - PSORIASIS [None]
  - DEPRESSION [None]
  - ANXIETY [None]
  - DRUG ADMINISTRATION ERROR [None]
  - JOINT STIFFNESS [None]
  - DIZZINESS [None]
  - NAUSEA [None]
